FAERS Safety Report 7571333-5 (Version None)
Quarter: 2011Q2

REPORT INFORMATION
  Report Type: 
  Country: None (occurrence: None)
  Receive Date: 20110624
  Receipt Date: 20110616
  Transmission Date: 20111010
  Serious: Yes (Hospitalization)
  Sender: FDA-Public Use
  Company Number: B0722750A

PATIENT
  Sex: Female
  Weight: 53 kg

DRUGS (7)
  1. CLARITIN REDITABS [Concomitant]
     Route: 048
  2. CHINESE MEDICINE [Concomitant]
     Route: 048
  3. PAXIL [Suspect]
     Indication: PANIC DISORDER
     Dosage: 20MG PER DAY
     Route: 048
     Dates: end: 20110522
  4. PRANLUKAST [Concomitant]
     Dosage: 8IUAX PER DAY
     Route: 048
  5. GASMOTIN [Concomitant]
     Route: 048
  6. CINAL [Concomitant]
     Route: 048
  7. OLOPATADINE HCL [Concomitant]
     Route: 048

REACTIONS (3)
  - WOUND SECRETION [None]
  - ULCER HAEMORRHAGE [None]
  - ANXIETY [None]
